FAERS Safety Report 7086493-2 (Version None)
Quarter: 2010Q4

REPORT INFORMATION
  Report Type: 
  Country: None (occurrence: None)
  Receive Date: 20101105
  Receipt Date: 20101026
  Transmission Date: 20110411
  Serious: Yes (Hospitalization)
  Sender: FDA-Public Use
  Company Number: US-NAPPMUNDI-USA-2010-0051526

PATIENT
  Age: 49 Year
  Sex: Female

DRUGS (2)
  1. OXYCONTIN [Suspect]
     Indication: PAIN
     Dosage: 80 MG, TID
     Dates: start: 20101001
  2. OXYCONTIN [Suspect]
     Dosage: 80 UNK, UNK
     Dates: start: 20101026

REACTIONS (6)
  - ABDOMINAL PAIN UPPER [None]
  - CHOKING [None]
  - DRUG INEFFECTIVE [None]
  - DYSGEUSIA [None]
  - HOSPITALISATION [None]
  - VOMITING [None]
